FAERS Safety Report 24925002 (Version 1)
Quarter: 2025Q1

REPORT INFORMATION
  Report Type: Report from Study
  Country: US (occurrence: US)
  Receive Date: 20250204
  Receipt Date: 20250204
  Transmission Date: 20250408
  Serious: No
  Sender: EXELIXIS
  Company Number: US-EXELIXIS-CABO-24077527

PATIENT
  Sex: Female

DRUGS (1)
  1. CABOMETYX [Suspect]
     Active Substance: CABOZANTINIB S-MALATE
     Indication: Renal cancer
     Dosage: 40 MG, QD
     Route: 048

REACTIONS (10)
  - Abdominal discomfort [Unknown]
  - Fatigue [Unknown]
  - Food craving [Unknown]
  - Peripheral swelling [Unknown]
  - Swelling face [Unknown]
  - Anxiety [Unknown]
  - Skin discolouration [Unknown]
  - Eye swelling [Unknown]
  - Arthralgia [Unknown]
  - Dyspnoea [Unknown]
